FAERS Safety Report 19153886 (Version 1)
Quarter: 2021Q2

REPORT INFORMATION
  Report Type: Spontaneous
  Country: US (occurrence: US)
  Receive Date: 20210419
  Receipt Date: 20210419
  Transmission Date: 20210717
  Serious: Yes (Hospitalization)
  Sender: FDA-Public Use
  Company Number: US-CHIESI USA, INC.-US-2021CHI000082

PATIENT

DRUGS (1)
  1. BETHKIS [Suspect]
     Active Substance: TOBRAMYCIN
     Indication: ASTHMA
     Dosage: 300 MG, BID
     Route: 055

REACTIONS (4)
  - Pneumonia [Recovered/Resolved]
  - Skin infection [Recovered/Resolved]
  - Product use in unapproved indication [Recovered/Resolved]
  - Drug intolerance [Unknown]

NARRATIVE: CASE EVENT DATE: 20210219
